FAERS Safety Report 24462804 (Version 1)
Quarter: 2024Q4

REPORT INFORMATION
  Report Type: Spontaneous
  Country: GB (occurrence: GB)
  Receive Date: 20241018
  Receipt Date: 20241018
  Transmission Date: 20250115
  Serious: Yes (Other)
  Sender: AUROBINDO
  Company Number: GB-MHRA-MED-202410061024280210-SFPYQ

PATIENT
  Age: 58 Year
  Sex: Female

DRUGS (1)
  1. CIPROFLOXACIN [Suspect]
     Active Substance: CIPROFLOXACIN
     Indication: Biliary colic
     Dosage: UNK
     Route: 065
     Dates: start: 20241002, end: 20241004

REACTIONS (1)
  - Joint swelling [Recovering/Resolving]

NARRATIVE: CASE EVENT DATE: 20241003
